FAERS Safety Report 8281020-6 (Version None)
Quarter: 2012Q2

REPORT INFORMATION
  Report Type: 
  Country: None (occurrence: None)
  Receive Date: 20120412
  Receipt Date: 20120411
  Transmission Date: 20120825
  Serious: Yes (Hospitalization, Other)
  Sender: FDA-Public Use
  Company Number: BR-ABBOTT-11P-020-0857255-00

PATIENT
  Sex: Male
  Weight: 85.2 kg

DRUGS (8)
  1. CYCLOSPORINE [Suspect]
     Indication: IMMUNOSUPPRESSION
  2. NSAID'S [Concomitant]
     Indication: PRODUCT USED FOR UNKNOWN INDICATION
  3. ADALIMUMAB [Suspect]
     Route: 050
     Dates: start: 20080603, end: 20100629
  4. PREDNISONE TAB [Suspect]
     Indication: PRODUCT USED FOR UNKNOWN INDICATION
     Dosage: 60 MG DAILY
  5. PREDNISONE TAB [Suspect]
     Dosage: 10 MG DAILY
  6. ADALIMUMAB [Suspect]
     Indication: POLYARTHRITIS
     Dates: start: 20080206
  7. CHLOROQUINE PHOSPHATE [Concomitant]
     Indication: PRODUCT USED FOR UNKNOWN INDICATION
     Dosage: 250 MG DAILY
  8. GLUCOCORTICOIDS [Concomitant]
     Indication: PRODUCT USED FOR UNKNOWN INDICATION

REACTIONS (6)
  - SKIN WARM [None]
  - MUSCLE ABSCESS [None]
  - PAIN IN EXTREMITY [None]
  - ERYTHEMA [None]
  - DEEP VEIN THROMBOSIS [None]
  - NO THERAPEUTIC RESPONSE [None]
